FAERS Safety Report 23758124 (Version 4)
Quarter: 2024Q2

REPORT INFORMATION
  Report Type: Spontaneous
  Country: US (occurrence: None)
  Receive Date: 20240418
  Receipt Date: 20240607
  Transmission Date: 20240716
  Serious: No
  Sender: FDA-Public Use
  Company Number: 2024A085078

PATIENT
  Sex: Male

DRUGS (2)
  1. BYDUREON BCISE [Suspect]
     Active Substance: EXENATIDE
     Indication: Diabetes mellitus
     Dosage: 2.0MG UNKNOWN
     Dates: start: 201209
  2. BYDUREON [Suspect]
     Active Substance: EXENATIDE

REACTIONS (10)
  - Blood glucose increased [Unknown]
  - Injection site pain [Unknown]
  - Injection site bruising [Unknown]
  - Contusion [Unknown]
  - Device defective [Unknown]
  - Product storage error [Unknown]
  - Wrong technique in device usage process [Unknown]
  - Incorrect dose administered by device [Unknown]
  - Device leakage [Unknown]
  - Illness [Unknown]
